FAERS Safety Report 10142725 (Version 1)
Quarter: 2014Q2

REPORT INFORMATION
  Report Type: Spontaneous
  Country: NL (occurrence: None)
  Receive Date: 20140425
  Receipt Date: 20140425
  Transmission Date: 20141212
  Serious: Yes (Hospitalization)
  Sender: FDA-Public Use
  Company Number: MYCO20140003

PATIENT
  Age: 56 Year
  Sex: Male

DRUGS (3)
  1. MYCOPHENOLATE MOFETIL [Suspect]
     Indication: IMMUNOSUPPRESSION
  2. TACROLIMUS [Suspect]
     Indication: DRUG THERAPY
  3. PREDNISOLONE [Suspect]
     Indication: IMMUNOSUPPRESSION

REACTIONS (9)
  - Pyrexia [None]
  - Escherichia test positive [None]
  - BK virus infection [None]
  - Viral load increased [None]
  - Deep vein thrombosis [None]
  - Peripheral artery thrombosis [None]
  - Metastatic carcinoma of the bladder [None]
  - Metastases to retroperitoneum [None]
  - Metastases to gastrointestinal tract [None]
